FAERS Safety Report 7206353-3 (Version None)
Quarter: 2010Q4

REPORT INFORMATION
  Report Type: 
  Country: None (occurrence: None)
  Receive Date: 20101217
  Receipt Date: 20101130
  Transmission Date: 20110411
  Serious: No
  Sender: FDA-Public Use
  Company Number: 007447

PATIENT
  Age: 95 Year
  Sex: Male

DRUGS (2)
  1. PLETAL [Suspect]
     Indication: ARTERIOSCLEROSIS OBLITERANS
     Dosage: 100 MG BID, ORAL
     Route: 048
     Dates: start: 20090430, end: 20090529
  2. CANDESARTAN CILEXETIL [Concomitant]

REACTIONS (2)
  - OEDEMA PERIPHERAL [None]
  - RENAL IMPAIRMENT [None]
